FAERS Safety Report 20633912 (Version 4)
Quarter: 2023Q2

REPORT INFORMATION
  Report Type: Report from Study
  Country: SE (occurrence: SE)
  Receive Date: 20220324
  Receipt Date: 20230404
  Transmission Date: 20230721
  Serious: Yes (Hospitalization)
  Sender: FDA-Public Use
  Company Number: SE-ABBVIE-21K-150-4125501-00

PATIENT
  Age: 68 Year
  Sex: Female
  Weight: 58 kg

DRUGS (7)
  1. CARBIDOPA\LEVODOPA [Suspect]
     Active Substance: CARBIDOPA\LEVODOPA
     Indication: Parkinson^s disease
     Dosage: THERAPY DURATION: REMAINS AT 16H
     Route: 050
     Dates: start: 20190617
  2. CARBIDOPA\LEVODOPA [Suspect]
     Active Substance: CARBIDOPA\LEVODOPA
     Dosage: CONTINUOUS DOSE INCREASED FROM 2.1ML/H TO 2.2ML/H.?LAST ADMIN DATE: 2021
     Route: 050
     Dates: start: 20211018
  3. CARBIDOPA\LEVODOPA [Suspect]
     Active Substance: CARBIDOPA\LEVODOPA
     Dosage: CURRENT DOSAGE: MORNING DOSE: 6.5 ML, EXTRA DOSE: 1.0 ML.
     Route: 050
     Dates: start: 20211018
  4. CARBIDOPA\LEVODOPA [Suspect]
     Active Substance: CARBIDOPA\LEVODOPA
     Dosage: CURRENT DOSAGES: CONTINUOUS DOSE 2.0 ML/H., LAST ADMIN DATE: 2022
     Route: 050
     Dates: start: 20220117
  5. CARBIDOPA\LEVODOPA [Suspect]
     Active Substance: CARBIDOPA\LEVODOPA
     Dosage: CURRENTLY TAKES ABOUT 1-3 EXTRA DOSES DAILY, LAST ADMIN DATE: 2022
     Route: 050
     Dates: start: 20220616
  6. CARBIDOPA\LEVODOPA [Suspect]
     Active Substance: CARBIDOPA\LEVODOPA
     Dosage: CURRENT DOSAGE: CONTINUOUS DOSE: 1.9 ML/H
     Route: 050
     Dates: start: 20220919
  7. CARBIDOPA\LEVODOPA [Suspect]
     Active Substance: CARBIDOPA\LEVODOPA
     Dosage: CURRENT DOSAGE: MORNING DOSE 6.5 ML, CONTINUOUS DOSE 1.8 ML/H AND EXTRA DOSE 1.0 ML.
     Route: 050
     Dates: start: 20230330

REACTIONS (13)
  - Fall [Not Recovered/Not Resolved]
  - Balance disorder [Not Recovered/Not Resolved]
  - Incorrect route of product administration [Recovered/Resolved]
  - Skin irritation [Unknown]
  - Device difficult to use [Unknown]
  - Stoma complication [Unknown]
  - Weight decreased [Not Recovered/Not Resolved]
  - Appetite disorder [Unknown]
  - Musculoskeletal stiffness [Recovering/Resolving]
  - Device dislocation [Recovered/Resolved]
  - On and off phenomenon [Recovering/Resolving]
  - Freezing phenomenon [Recovering/Resolving]
  - Excessive granulation tissue [Not Recovered/Not Resolved]

NARRATIVE: CASE EVENT DATE: 20210901
